FAERS Safety Report 5774429-3 (Version None)
Quarter: 2008Q2

REPORT INFORMATION
  Report Type: 
  Country: None (occurrence: None)
  Receive Date: 20080616
  Receipt Date: 20080604
  Transmission Date: 20081010
  Serious: Yes (Hospitalization, Other)
  Sender: FDA-Public Use
  Company Number: CH-PFIZER INC-2008042542

PATIENT
  Sex: Female
  Weight: 65 kg

DRUGS (3)
  1. ZITHROMAX [Suspect]
     Indication: BRONCHITIS
     Route: 048
     Dates: start: 20080404, end: 20080406
  2. SOLMUCOL [Concomitant]
     Route: 048
     Dates: start: 20080404, end: 20080407
  3. DAFALGAN [Concomitant]
     Route: 048
     Dates: start: 20080404, end: 20080407

REACTIONS (3)
  - GRAND MAL CONVULSION [None]
  - LIVER FUNCTION TEST ABNORMAL [None]
  - MALAISE [None]
